FAERS Safety Report 4783582-X (Version None)
Quarter: 2005Q3

REPORT INFORMATION
  Report Type: 
  Country: None (occurrence: None)
  Receive Date: 20050928
  Receipt Date: 20050914
  Transmission Date: 20060218
  Serious: Yes (Death)
  Sender: FDA-Public Use
  Company Number: AU_050508605

PATIENT
  Age: 25 Year
  Sex: Male

DRUGS (5)
  1. ZYPREXA [Suspect]
     Dosage: 10 MG OTHER
     Dates: start: 20040601, end: 20040601
  2. ZYPREXA [Suspect]
  3. CHLORPROMAZINE [Concomitant]
  4. BENZODIAZEPINE [Concomitant]
  5. CLONAZEPAM [Concomitant]

REACTIONS (8)
  - AGGRESSION [None]
  - AGITATION [None]
  - ASTHMA [None]
  - CONDITION AGGRAVATED [None]
  - HALLUCINATION [None]
  - PARANOIA [None]
  - PHYSICAL ASSAULT [None]
  - STATUS ASTHMATICUS [None]
